FAERS Safety Report 6429992-6 (Version None)
Quarter: 2009Q4

REPORT INFORMATION
  Report Type: 
  Country: None (occurrence: None)
  Receive Date: 20091106
  Receipt Date: 20091030
  Transmission Date: 20100525
  Serious: Yes (Other)
  Sender: FDA-Public Use
  Company Number: CN-JNJFOC-20091101336

PATIENT

DRUGS (2)
  1. RISPERIDONE [Suspect]
     Dosage: INCREASED TO 2-4 MG DAILY GRADUALLY IN 2 WEEKS
     Route: 048
  2. RISPERIDONE [Suspect]
     Indication: SCHIZOPHRENIA
     Route: 048

REACTIONS (1)
  - VENTRICULAR EXTRASYSTOLES [None]
